FAERS Safety Report 4684017-8 (Version None)
Quarter: 2005Q2

REPORT INFORMATION
  Report Type: 
  Country: None (occurrence: None)
  Receive Date: 20050602
  Receipt Date: 20050121
  Transmission Date: 20051028
  Serious: No
  Sender: FDA-Public Use
  Company Number: USA050188962

PATIENT
  Age: 73 Year
  Sex: Female
  Weight: 93 kg

DRUGS (7)
  1. CYMBALTA [Suspect]
     Indication: NEUROPATHY
     Dosage: 30 MG IN THE MORNING
  2. LEVOTHYROXINE [Concomitant]
  3. SECTRAL [Concomitant]
  4. DYAZIDE [Concomitant]
  5. LIPITOR [Concomitant]
  6. XANAX (ALPRAZOLAM DUM) [Concomitant]
  7. FOSAMAX [Concomitant]

REACTIONS (4)
  - DIFFICULTY IN WALKING [None]
  - MALAISE [None]
  - SLEEP DISORDER [None]
  - VISION BLURRED [None]
